FAERS Safety Report 8620399-X (Version None)
Quarter: 2012Q3

REPORT INFORMATION
  Report Type: 
  Country: None (occurrence: None)
  Receive Date: 20120824
  Receipt Date: 20120810
  Transmission Date: 20120928
  Serious: Yes (Other)
  Sender: FDA-Public Use
  Company Number: FR-GLAXOSMITHKLINE-B0775044B

PATIENT
  Sex: Male
  Weight: 69 kg

DRUGS (3)
  1. PAZOPANIB [Suspect]
     Indication: NEOPLASM
     Dosage: 400MG PER DAY
     Route: 048
     Dates: start: 20111123
  2. CISPLATIN [Suspect]
     Indication: NEOPLASM
     Dosage: 283.6MG CUMULATIVE DOSE
     Route: 042
     Dates: start: 20111201
  3. NEO-MERCAZOLE TAB [Concomitant]
     Route: 048
     Dates: start: 20120626

REACTIONS (1)
  - FORCED EXPIRATORY VOLUME DECREASED [None]
